FAERS Safety Report 7797485-X (Version None)
Quarter: 2011Q4

REPORT INFORMATION
  Report Type: 
  Country: None (occurrence: None)
  Receive Date: 20111004
  Receipt Date: 20111004
  Transmission Date: 20120403
  Serious: Yes (Hospitalization)
  Sender: FDA-Public Use
  Company Number: None

PATIENT
  Sex: Female
  Weight: 82 kg

DRUGS (4)
  1. PREDNISONE [Suspect]
     Dosage: 400 MG
     Dates: end: 20110926
  2. MERCAPTOPURINE [Suspect]
     Dosage: 300 MG
     Dates: end: 20110919
  3. METHOTREXATE [Suspect]
     Dosage: 30 MG
     Dates: end: 20110922
  4. VINCRISTINE SULFATE [Suspect]
     Dosage: 4 MG
     Dates: end: 20110922

REACTIONS (11)
  - NEUTROPENIA [None]
  - PYREXIA [None]
  - DIARRHOEA [None]
  - FATIGUE [None]
  - HYPOTENSION [None]
  - VOMITING [None]
  - DIZZINESS [None]
  - KLEBSIELLA TEST POSITIVE [None]
  - TACHYCARDIA [None]
  - HEADACHE [None]
  - SEPTIC SHOCK [None]
